FAERS Safety Report 16184200 (Version 1)
Quarter: 2019Q2

REPORT INFORMATION
  Report Type: Spontaneous
  Country: US (occurrence: US)
  Receive Date: 20190308
  Receipt Date: 20190308
  Transmission Date: 20190711
  Serious: Yes (Hospitalization, Other)
  Sender: FDA-Public Use
  Company Number: None

PATIENT
  Age: 48 Year
  Sex: Female
  Weight: 63.5 kg

DRUGS (1)
  1. VENLAFAXINE ER [Suspect]
     Active Substance: VENLAFAXINE HYDROCHLORIDE
     Indication: MAJOR DEPRESSION
     Route: 048
     Dates: start: 20160519, end: 20160528

REACTIONS (6)
  - Therapy change [None]
  - Bipolar I disorder [None]
  - Condition aggravated [None]
  - Blindness [None]
  - Sleep terror [None]
  - Migraine [None]

NARRATIVE: CASE EVENT DATE: 20190205
